FAERS Safety Report 25239734 (Version 2)
Quarter: 2025Q2

REPORT INFORMATION
  Report Type: Spontaneous
  Country: US (occurrence: US)
  Receive Date: 20250425
  Receipt Date: 20250506
  Transmission Date: 20250716
  Serious: No
  Sender: BRISTOL-MYERS SQUIBB COMPANY
  Company Number: US-BRISTOL-MYERS SQUIBB COMPANY-2025-050934

PATIENT
  Age: 72 Year
  Sex: Male
  Weight: 80.74 kg

DRUGS (4)
  1. ELIQUIS [Suspect]
     Active Substance: APIXABAN
     Indication: Myocardial infarction
     Dosage: OTHER MEDICINES ELIQUIS: TAKING FOR WANTS TO SAY ROUGHLY 6-7 YEARS.
     Route: 048
  2. PAXLOVID [Concomitant]
     Active Substance: NIRMATRELVIR\RITONAVIR
     Indication: COVID-19
     Dosage: IT WAS TWICE A DAY FOR 5 DAYS.
     Dates: start: 2021
  3. CLOPIDOGREL [Concomitant]
     Active Substance: CLOPIDOGREL BISULFATE
     Indication: Anaemia
     Dosage: OTHER MEDICINES CLOPIDOGREL: HAS BEEN ON FOR A WHILE, AT LEAST 10 YEARS INDICATION: HAD ANEMIA AND A
     Route: 048
  4. ATORVASTATIN [Concomitant]
     Active Substance: ATORVASTATIN
     Indication: Blood cholesterol
     Dosage: OTHER MEDICINES ATORVASTATIN: BEEN ON FOR PROBABLY 15 YEARS ROUGHLY.
     Route: 048

REACTIONS (2)
  - Influenza [Unknown]
  - Off label use [Unknown]
